FAERS Safety Report 5503180-X (Version None)
Quarter: 2007Q4

REPORT INFORMATION
  Report Type: 
  Country: None (occurrence: None)
  Receive Date: 20071031
  Receipt Date: 20071019
  Transmission Date: 20080405
  Serious: Yes (Life-Threatening, Hospitalization)
  Sender: FDA-Public Use
  Company Number: GB-AMGEN-US248125

PATIENT
  Sex: Female

DRUGS (5)
  1. ENBREL [Suspect]
     Indication: JUVENILE ARTHRITIS
     Route: 058
     Dates: start: 20070518, end: 20070925
  2. ENBREL [Suspect]
     Route: 058
     Dates: start: 20070126, end: 20070228
  3. FOLIC ACID [Concomitant]
     Indication: JUVENILE ARTHRITIS
     Route: 048
     Dates: start: 20050908
  4. DIANETTE [Concomitant]
     Indication: CONTRACEPTION
     Dosage: UNKNOWN
     Route: 048
  5. METHOTREXATE [Concomitant]
     Indication: JUVENILE ARTHRITIS
     Route: 058
     Dates: start: 20050908

REACTIONS (1)
  - MENINGITIS MENINGOCOCCAL [None]
